FAERS Safety Report 16208073 (Version 2)
Quarter: 2019Q4

REPORT INFORMATION
  Report Type: Report from Study
  Country: DE (occurrence: DE)
  Receive Date: 20190417
  Receipt Date: 20191017
  Transmission Date: 20200122
  Serious: Yes (Hospitalization, Other)
  Sender: FDA-Public Use
  Company Number: DE-BRISTOL-MYERS SQUIBB COMPANY-BMS-2019-037206

PATIENT
  Age: 50 Year
  Sex: Female
  Weight: 93 kg

DRUGS (2)
  1. APIXABAN [Suspect]
     Active Substance: APIXABAN
     Indication: EMBOLISM VENOUS
     Dosage: 10 MILLIGRAM, BID
     Route: 048
     Dates: start: 20171220
  2. APIXABAN [Suspect]
     Active Substance: APIXABAN
     Indication: PRODUCT USED FOR UNKNOWN INDICATION
     Dosage: 2.5 ABSENT, QD
     Route: 048

REACTIONS (10)
  - Brain natriuretic peptide increased [Unknown]
  - Fibrin D dimer increased [Unknown]
  - Peripheral arterial occlusive disease [Unknown]
  - Acute coronary syndrome [Unknown]
  - Myocardial infarction [Unknown]
  - Off label use [Unknown]
  - Troponin increased [Unknown]
  - Chest pain [Unknown]
  - Orthostatic hypotension [Unknown]
  - Pulmonary embolism [Unknown]

NARRATIVE: CASE EVENT DATE: 20190117
